FAERS Safety Report 17873366 (Version 2)
Quarter: 2020Q2

REPORT INFORMATION
  Report Type: Spontaneous
  Country: BE (occurrence: BE)
  Receive Date: 20200609
  Receipt Date: 20200620
  Transmission Date: 20200714
  Serious: Yes (Death, Life-Threatening, Hospitalization, Other)
  Sender: FDA-Public Use
  Company Number: BE-AUROBINDO-AUR-APL-2020-026981

PATIENT
  Age: 45 Year
  Sex: Male

DRUGS (1)
  1. PARACETAMOL [Suspect]
     Active Substance: ACETAMINOPHEN
     Indication: PRODUCT USED FOR UNKNOWN INDICATION
     Dosage: UNK
     Route: 065

REACTIONS (9)
  - Toxicity to various agents [Fatal]
  - Hepatitis fulminant [Unknown]
  - Pyramidal tract syndrome [Unknown]
  - Pupils unequal [Unknown]
  - Acute hepatic failure [Unknown]
  - Overdose [Fatal]
  - Intracranial pressure increased [Fatal]
  - Hyperammonaemic encephalopathy [Fatal]
  - Cytotoxic oedema [Unknown]
